FAERS Safety Report 16769686 (Version 3)
Quarter: 2020Q2

REPORT INFORMATION
  Report Type: Spontaneous
  Country: US (occurrence: US)
  Receive Date: 20190903
  Receipt Date: 20200604
  Transmission Date: 20200713
  Serious: No
  Sender: FDA-Public Use
  Company Number: US-009507513-1909USA000669

PATIENT
  Age: 18 Year
  Sex: Female
  Weight: 77.11 kg

DRUGS (1)
  1. NEXPLANON [Suspect]
     Active Substance: ETONOGESTREL
     Indication: CONTRACEPTION
     Dosage: 68 MILLIGRAM (MG), 3 YEARS, LEFT ARM
     Route: 023
     Dates: start: 20190725, end: 20190829

REACTIONS (8)
  - Implant site induration [Recovered/Resolved]
  - Implant site bruising [Recovering/Resolving]
  - Device expulsion [Recovered/Resolved]
  - Tenderness [Recovered/Resolved]
  - Device placement issue [Unknown]
  - Incorrect route of product administration [Unknown]
  - Implant site pain [Recovering/Resolving]
  - Skin erosion [Recovered/Resolved]

NARRATIVE: CASE EVENT DATE: 20190725
